FAERS Safety Report 10180517 (Version 1)
Quarter: 2014Q2

REPORT INFORMATION
  Report Type: Spontaneous
  Country: US (occurrence: US)
  Receive Date: 20140519
  Receipt Date: 20140519
  Transmission Date: 20141212
  Serious: No
  Sender: FDA-Public Use
  Company Number: US-AMGEN INC.-USASP2014002524

PATIENT
  Sex: Female

DRUGS (2)
  1. PROLIA [Suspect]
     Indication: OSTEOPOROSIS POSTMENOPAUSAL
     Dosage: UNK
     Route: 065
  2. CALCIUM [Concomitant]

REACTIONS (9)
  - Gingival disorder [Unknown]
  - Somnolence [Unknown]
  - Feeling abnormal [Unknown]
  - Rash pustular [Unknown]
  - Tenderness [Unknown]
  - Dry skin [Unknown]
  - Cyst [Unknown]
  - Fatigue [Unknown]
  - Back pain [Unknown]
